FAERS Safety Report 10598976 (Version 1)
Quarter: 2014Q4

REPORT INFORMATION
  Report Type: Spontaneous
  Country: US (occurrence: None)
  Receive Date: 20141119
  Receipt Date: 20141119
  Transmission Date: 20150529
  Serious: No
  Sender: FDA-Public Use
  Company Number: 1000067950

PATIENT
  Age: 73 Year
  Sex: Female

DRUGS (16)
  1. TUDORZA PRESSAIR [Suspect]
     Active Substance: ACLIDINIUM BROMIDE
     Indication: CHRONIC OBSTRUCTIVE PULMONARY DISEASE
     Dosage: 400 MCG (400 MCG, 2 IN 1 D), RESPIRATORY (INHALATION)?
     Route: 055
     Dates: start: 201405
  2. DALIRESP (ROFLUMILAST) (ROFLUMILAST) [Concomitant]
  3. LINZESS [Suspect]
     Active Substance: LINACLOTIDE
     Indication: IRRITABLE BOWEL SYNDROME
     Dosage: 145MCG (145 MCG, 1 IN 1 D), ORAL
     Route: 048
     Dates: start: 201405, end: 201405
  4. STOOL SOFTENER (DOCUSATE SODIUM) (DOCUSATE SODIUM) [Concomitant]
  5. FUROSEMIDE (FUROSEMIDE) (FUROSEMIDE) [Concomitant]
     Active Substance: FUROSEMIDE
  6. SYMBICORT (BUDESONIDE W/FORMOTEROL FUMARATE) (BUDESONIDE W/FORMOTEROL FUMARATE) [Concomitant]
  7. SINGULAIR (MONTELUKAST SODIUM) (MONTELUKAST SODIUM) [Concomitant]
  8. OMEPRAZOLE (OMEPRAZOLE) (OMEPRAZOLE) [Concomitant]
     Active Substance: OMEPRAZOLE
  9. POTASSIUM (POTASSIUM) (POTASSIUM) [Concomitant]
  10. ALPRAZOLAM (ALPRAZOLAM) (ALPRAZOLAM) [Concomitant]
     Active Substance: ALPRAZOLAM
  11. ASPIRIN (ACETYLSALICYLIC ACID) (ACETYLSALICYLIC ACID0 [Concomitant]
  12. MUCINEX (GUAIFENESIN) (GUAIFENESIN) [Concomitant]
  13. PREDNISONE (PREDNISONE) (PREDNISONE) [Concomitant]
     Active Substance: PREDNISONE
  14. ALBUTEROL (ALBUTEROL) (ALBUTEROL) [Concomitant]
     Active Substance: ALBUTEROL
  15. AMLODIPINE [Concomitant]
     Active Substance: AMLODIPINE BESYLATE
  16. CLARITIN (RANATIDINE) (RANATIDINE) [Concomitant]

REACTIONS (7)
  - Headache [None]
  - Fatigue [None]
  - Dyspnoea [None]
  - Dizziness [None]
  - Diarrhoea [None]
  - Muscle spasms [None]
  - Abdominal discomfort [None]

NARRATIVE: CASE EVENT DATE: 201405
